FAERS Safety Report 14970246 (Version 1)
Quarter: 2018Q2

REPORT INFORMATION
  Report Type: Spontaneous
  Country: US (occurrence: US)
  Receive Date: 20180512
  Receipt Date: 20180512
  Transmission Date: 20180711
  Serious: Yes (Hospitalization)
  Sender: FDA-Public Use
  Company Number: None

PATIENT
  Age: 63 Year
  Sex: Male
  Weight: 89.4 kg

DRUGS (3)
  1. CEFEPIME [Suspect]
     Active Substance: CEFEPIME HYDROCHLORIDE
     Indication: OSTEOMYELITIS
     Route: 042
     Dates: start: 20180411, end: 20180507
  2. CEFEPIME [Suspect]
     Active Substance: CEFEPIME HYDROCHLORIDE
     Indication: OSTEOMYELITIS
  3. CEFEPIME [Suspect]
     Active Substance: CEFEPIME HYDROCHLORIDE
     Indication: VASCULAR OPERATION
     Route: 042
     Dates: start: 20180411, end: 20180507

REACTIONS (5)
  - Seizure [None]
  - Toxicity to various agents [None]
  - Renal impairment [None]
  - Delirium [None]
  - Aphasia [None]

NARRATIVE: CASE EVENT DATE: 20180507
